FAERS Safety Report 9596761 (Version 1)
Quarter: 2013Q4

REPORT INFORMATION
  Report Type: Spontaneous
  Country: BR (occurrence: BR)
  Receive Date: 20131004
  Receipt Date: 20131004
  Transmission Date: 20140711
  Serious: Yes (Death, Congenital Anomaly)
  Sender: FDA-Public Use
  Company Number: BR-ELI_LILLY_AND_COMPANY-BR201310000207

PATIENT
  Sex: 0

DRUGS (2)
  1. HUMULIN N [Suspect]
     Dosage: UNK, UNKNOWN
     Route: 065
     Dates: start: 201302
  2. HUMALOG [Suspect]
     Dosage: UNK, UNKNOWN
     Route: 065
     Dates: start: 201302

REACTIONS (3)
  - Stillbirth [Fatal]
  - Brain malformation [Not Recovered/Not Resolved]
  - Foetal exposure during pregnancy [Unknown]
